FAERS Safety Report 9682824 (Version 2)
Quarter: 2013Q4

REPORT INFORMATION
  Report Type: Report from Study
  Country: CA (occurrence: CA)
  Receive Date: 20131112
  Receipt Date: 20131118
  Transmission Date: 20140711
  Serious: Yes (Other)
  Sender: FDA-Public Use
  Company Number: PHHY2013CA128239

PATIENT
  Sex: Male

DRUGS (3)
  1. CLOZARIL [Suspect]
     Indication: SCHIZOPHRENIA
     Dosage: UNK UKN, UNK
     Route: 048
     Dates: start: 20021028
  2. CLOZARIL [Suspect]
     Dosage: 475 MG, QHS
     Route: 048
     Dates: start: 2005
  3. EPIVAL [Concomitant]
     Dosage: 750 MG, QHS

REACTIONS (1)
  - Electrocardiogram ST segment abnormal [Not Recovered/Not Resolved]
